FAERS Safety Report 17641439 (Version 3)
Quarter: 2020Q2

REPORT INFORMATION
  Report Type: Spontaneous
  Country: RU (occurrence: RU)
  Receive Date: 20200407
  Receipt Date: 20200605
  Transmission Date: 20200713
  Serious: Yes (Life-Threatening, Disabling, Congenital Anomaly, Other)
  Sender: FDA-Public Use
  Company Number: RU-LUNDBECK-DKLU3015079

PATIENT
  Age: 8 Year
  Sex: Male
  Weight: 27 kg

DRUGS (9)
  1. URBANIL [Suspect]
     Active Substance: CLOBAZAM
     Route: 065
     Dates: start: 20191230
  2. TOPAMAX [Concomitant]
     Active Substance: TOPIRAMATE
     Indication: EPILEPTIC ENCEPHALOPATHY
     Route: 065
     Dates: start: 2014
  3. DEPAKINE CHRONOSPHERE [Concomitant]
     Active Substance: VALPROIC ACID
     Indication: EPILEPTIC ENCEPHALOPATHY
     Route: 065
     Dates: start: 2016
  4. URBANIL [Suspect]
     Active Substance: CLOBAZAM
     Route: 065
     Dates: start: 20191221
  5. SABRIL [Concomitant]
     Active Substance: VIGABATRIN
     Indication: EPILEPTIC ENCEPHALOPATHY
     Route: 065
     Dates: start: 2018
  6. FRISIUM [Concomitant]
     Active Substance: CLOBAZAM
     Indication: EPILEPSY
     Route: 065
     Dates: start: 20190701, end: 20191201
  7. DIAPAMIDE. [Concomitant]
     Active Substance: DIAPAMIDE
     Indication: EPILEPTIC ENCEPHALOPATHY
     Route: 065
     Dates: start: 2019
  8. URBANIL [Suspect]
     Active Substance: CLOBAZAM
     Indication: EPILEPSY
     Route: 048
     Dates: start: 20191201
  9. URBANIL [Suspect]
     Active Substance: CLOBAZAM
     Route: 065
     Dates: start: 20191225

REACTIONS (5)
  - Sleep disorder [Not Recovered/Not Resolved]
  - Anxiety [Not Recovered/Not Resolved]
  - Poor quality sleep [Not Recovered/Not Resolved]
  - Epilepsy [Not Recovered/Not Resolved]
  - Seizure [Not Recovered/Not Resolved]

NARRATIVE: CASE EVENT DATE: 20191201
